FAERS Safety Report 18787531 (Version 1)
Quarter: 2021Q1

REPORT INFORMATION
  Report Type: Spontaneous
  Country: US (occurrence: US)
  Receive Date: 20210125
  Receipt Date: 20210125
  Transmission Date: 20210419
  Serious: No
  Sender: FDA-Public Use
  Company Number: US-ACORDA-ACO_164126_2020

PATIENT
  Sex: Female
  Weight: 45.35 kg

DRUGS (2)
  1. AMPYRA [Suspect]
     Active Substance: DALFAMPRIDINE
     Indication: PRODUCT USED FOR UNKNOWN INDICATION
     Dosage: 1 DOSAGE FORM, BID
     Route: 065
     Dates: end: 20200304
  2. AMPYRA [Suspect]
     Active Substance: DALFAMPRIDINE
     Dosage: 1 DOSAGE FORM, QD
     Route: 065

REACTIONS (5)
  - Therapeutic response shortened [Unknown]
  - Insomnia [Unknown]
  - Balance disorder [Unknown]
  - Gait inability [Unknown]
  - Ill-defined disorder [Unknown]
